FAERS Safety Report 6160907-4 (Version None)
Quarter: 2009Q2

REPORT INFORMATION
  Report Type: 
  Country: None (occurrence: None)
  Receive Date: 20090417
  Receipt Date: 20090417
  Transmission Date: 20091009
  Serious: Yes (Life-Threatening, Hospitalization)
  Sender: FDA-Public Use
  Company Number: None

PATIENT
  Age: 22 Year
  Sex: Female
  Weight: 87.0906 kg

DRUGS (3)
  1. FIORINAL W/CODEINE [Suspect]
     Indication: MIGRAINE
     Dosage: 30-50-325-40 1-2 PRN 6 HOURS PO
     Route: 048
     Dates: start: 20090413, end: 20090418
  2. FIORINAL W/CODEINE [Suspect]
     Indication: PAIN MANAGEMENT
     Dosage: 30-50-325-40 1-2 PRN 6 HOURS PO
     Route: 048
     Dates: start: 20090413, end: 20090418
  3. PREDNISONE TAB [Suspect]
     Indication: SINUSITIS
     Dosage: 10MG 5 THEN 4 THEN3 ECT PO
     Route: 048
     Dates: start: 20090413, end: 20090415

REACTIONS (7)
  - COUGH [None]
  - DRUG INTERACTION [None]
  - DYSPNOEA [None]
  - MIGRAINE [None]
  - PULMONARY OEDEMA [None]
  - SINUSITIS [None]
  - WHEEZING [None]
